FAERS Safety Report 23153145 (Version 1)
Quarter: 2023Q4

REPORT INFORMATION
  Report Type: Report from Study
  Country: GB (occurrence: GB)
  Receive Date: 20231107
  Receipt Date: 20231107
  Transmission Date: 20240110
  Serious: Yes (Hospitalization, Other)
  Sender: FDA-Public Use
  Company Number: GB-002147023-NVSC2023GB208925

PATIENT
  Age: 56 Year
  Sex: Female

DRUGS (2)
  1. MAYZENT [Suspect]
     Active Substance: SIPONIMOD
     Indication: Secondary progressive multiple sclerosis
     Dosage: 0.25 MG, OTHER (DAY 1 OF TITRATION DOSE)
     Route: 048
     Dates: start: 20230925
  2. MAYZENT [Suspect]
     Active Substance: SIPONIMOD
     Indication: Multiple sclerosis
     Dosage: 2 MG, QD (STRENGTH: 2 MG)
     Route: 048

REACTIONS (17)
  - Urinary tract infection [Unknown]
  - Multiple sclerosis relapse [Unknown]
  - Speech disorder [Unknown]
  - Fall [Unknown]
  - Mobility decreased [Unknown]
  - Urinary incontinence [Unknown]
  - Dry mouth [Not Recovered/Not Resolved]
  - Abdominal pain upper [Unknown]
  - Cystitis [Unknown]
  - Feeling abnormal [Unknown]
  - Vomiting [Unknown]
  - Chest pain [Unknown]
  - Asthenia [Unknown]
  - Eating disorder [Unknown]
  - Dysphagia [Unknown]
  - Muscular weakness [Unknown]
  - Illness [Unknown]

NARRATIVE: CASE EVENT DATE: 20230925
